FAERS Safety Report 8493021 (Version 3)
Quarter: 2014Q2

REPORT INFORMATION
  Report Type: Report from Study
  Country: SE (occurrence: SE)
  Receive Date: 20120404
  Receipt Date: 20140623
  Transmission Date: 20141212
  Serious: Yes (Hospitalization)
  Sender: FDA-Public Use
  Company Number: PHHO2012SE004802

PATIENT
  Age: 69 Year
  Sex: Female
  Weight: 61 kg

DRUGS (9)
  1. AFINITOR [Suspect]
     Indication: NEUROENDOCRINE TUMOUR
     Dosage: 10 MG, QD
     Route: 048
     Dates: start: 20111019, end: 20120321
  2. AFINITOR [Suspect]
     Dosage: 5 MG, QD
     Route: 048
     Dates: end: 20120602
  3. SODIUM CARBONATE [Concomitant]
     Indication: RENAL FAILURE
     Dosage: 1 G, BID
     Route: 048
     Dates: start: 20110823
  4. IRON SUPPLEMENTS [Concomitant]
     Indication: ANAEMIA
     Dosage: 100 MG, BID
     Route: 048
     Dates: start: 20110609
  5. FOLATE [Concomitant]
     Indication: FOLATE DEFICIENCY
     Dosage: 5 MG, QD
     Route: 048
     Dates: start: 20110609
  6. ENALAPRIL [Concomitant]
     Indication: HYPERTENSION
     Dosage: 5 MG, BID
     Route: 048
     Dates: start: 20111027
  7. TOLTERODINE [Concomitant]
     Indication: URINARY INCONTINENCE
     Dosage: 1 MG, QD
     Route: 048
     Dates: start: 20111205
  8. LAMOTRIGINE [Concomitant]
     Indication: EPILEPSY
     Dosage: 1 MG, QD
     Route: 048
     Dates: start: 20110712
  9. CITALOPRAM [Concomitant]
     Indication: DEPRESSION
     Dosage: 20 MG, QD
     Route: 048
     Dates: start: 20110712

REACTIONS (4)
  - Gastrointestinal oedema [Unknown]
  - Abdominal pain [Recovered/Resolved]
  - Nausea [Recovered/Resolved]
  - Vomiting [Recovered/Resolved]
